FAERS Safety Report 18468312 (Version 1)
Quarter: 2020Q4

REPORT INFORMATION
  Report Type: Spontaneous
  Country: US (occurrence: US)
  Receive Date: 20201105
  Receipt Date: 20201105
  Transmission Date: 20210114
  Serious: No
  Sender: FDA-Public Use
  Company Number: US-GLAXOSMITHKLINE-US2020218700

PATIENT
  Sex: Female

DRUGS (1)
  1. BENLYSTA [Suspect]
     Active Substance: BELIMUMAB
     Indication: PRODUCT USED FOR UNKNOWN INDICATION
     Dosage: UNK
     Route: 058
     Dates: start: 20200906

REACTIONS (4)
  - Erythema [Not Recovered/Not Resolved]
  - Injection site bruising [Recovered/Resolved]
  - Dry skin [Not Recovered/Not Resolved]
  - Swelling [Not Recovered/Not Resolved]
